FAERS Safety Report 9572292 (Version 1)
Quarter: 2013Q3

REPORT INFORMATION
  Report Type: Spontaneous
  Country: US (occurrence: None)
  Receive Date: 20130930
  Receipt Date: 20130930
  Transmission Date: 20140515
  Serious: Yes (Hospitalization)
  Sender: FDA-Public Use
  Company Number: None

PATIENT
  Age: 76 Year
  Sex: Female
  Weight: 72.3 kg

DRUGS (10)
  1. BENDAMUSTINE HYDROCHLORIDE [Suspect]
  2. BORTEZOMIB [Suspect]
  3. CIPROFLOXACIN [Concomitant]
  4. ZOFRAN [Concomitant]
  5. ACYCLOVIR [Concomitant]
  6. ERGOCALCIFEROL [Concomitant]
  7. FUROSEMIDE [Concomitant]
  8. LORAZEPAM [Concomitant]
  9. PROCHLORPERAZINE [Concomitant]
  10. TYLENOL [Concomitant]

REACTIONS (7)
  - Nausea [None]
  - Vomiting [None]
  - Diarrhoea [None]
  - Fatigue [None]
  - Pyrexia [None]
  - Dysuria [None]
  - Abdominal pain [None]
